FAERS Safety Report 5824639-1 (Version None)
Quarter: 2008Q3

REPORT INFORMATION
  Report Type: 
  Country: None (occurrence: None)
  Receive Date: 20080728
  Receipt Date: 20080717
  Transmission Date: 20090109
  Serious: Yes (Hospitalization)
  Sender: FDA-Public Use
  Company Number: FR-EISAI MEDIAL RESEARCH-E3810-02028-SPO-FR

PATIENT
  Sex: Female

DRUGS (12)
  1. RABEPRAZOLE SODIUM [Suspect]
     Route: 048
     Dates: start: 20070101
  2. EFFEXOR [Suspect]
     Indication: ANXIETY
     Route: 048
     Dates: start: 20080602
  3. LOSARTAN POTASSIUM AND HYDROCHLOROTHIAZIDE [Suspect]
     Indication: HYPERTENSION
     Route: 048
  4. SPIRONOLACTONE [Suspect]
     Indication: HYPERTENSION
     Route: 048
     Dates: start: 20080516
  5. LACTULOSE [Concomitant]
  6. VOGALENE [Concomitant]
  7. TANAKAN [Concomitant]
  8. AMIODARONE [Concomitant]
     Indication: HYPERTENSION
  9. TRAMADOL HCL [Concomitant]
     Indication: PAIN
     Route: 048
     Dates: start: 20080513
  10. ZANIDIP [Concomitant]
     Indication: HYPERTENSION
     Route: 048
  11. PREVISCAN [Concomitant]
  12. DESLORATADINE [Concomitant]

REACTIONS (18)
  - ASTHENIA [None]
  - AUTONOMIC NERVOUS SYSTEM IMBALANCE [None]
  - BRADYCARDIA [None]
  - CONSTIPATION [None]
  - DRUG INTERACTION [None]
  - FALL [None]
  - GENERAL PHYSICAL HEALTH DETERIORATION [None]
  - HAEMATOMA [None]
  - HYPERKALAEMIA [None]
  - HYPONATRAEMIA [None]
  - IATROGENIC INJURY [None]
  - INNER EAR DISORDER [None]
  - INTERMITTENT CLAUDICATION [None]
  - MALAISE [None]
  - PALPITATIONS [None]
  - RENAL FAILURE [None]
  - SINOATRIAL BLOCK [None]
  - VERTIGO [None]
